FAERS Safety Report 16614933 (Version 1)
Quarter: 2019Q3

REPORT INFORMATION
  Report Type: Report from Study
  Country: US (occurrence: US)
  Receive Date: 20190723
  Receipt Date: 20190723
  Transmission Date: 20191004
  Serious: Yes (Hospitalization, Other)
  Sender: FDA-Public Use
  Company Number: US-GILEAD-2019-0418237

PATIENT
  Age: 54 Year
  Sex: Male

DRUGS (2)
  1. ADEMPAS [Concomitant]
     Active Substance: RIOCIGUAT
  2. AMBRISENTAN [Suspect]
     Active Substance: AMBRISENTAN
     Indication: PRODUCT USED FOR UNKNOWN INDICATION
     Dosage: 10 MG, QD
     Route: 048
     Dates: start: 20170228

REACTIONS (7)
  - Cardiac disorder [Not Recovered/Not Resolved]
  - Swelling [Unknown]
  - Dyspnoea [Recovering/Resolving]
  - Dyspnoea [Unknown]
  - Syncope [Recovered/Resolved]
  - Pain [Unknown]
  - Syncope [Unknown]

NARRATIVE: CASE EVENT DATE: 201905
